FAERS Safety Report 4596128-6 (Version None)
Quarter: 2005Q1

REPORT INFORMATION
  Report Type: 
  Country: None (occurrence: None)
  Receive Date: 20050225
  Receipt Date: 20050217
  Transmission Date: 20050727
  Serious: Yes (Hospitalization)
  Sender: FDA-Public Use
  Company Number: A001-OCT-3720

PATIENT
  Age: 51 Year
  Sex: Male
  Weight: 64 kg

DRUGS (33)
  1. ARICEPT [Suspect]
  2. MARINOL [Suspect]
     Indication: DRUG USE FOR UNKNOWN INDICATION
  3. KYTRIL [Suspect]
     Dosage: 1 IN 1 D, INTRAVENOUS
     Route: 042
     Dates: start: 20030828, end: 20030828
  4. OXYCONTIN [Suspect]
     Dosage: 1 IN 12 HR
     Dates: start: 20030806, end: 20030905
  5. NEURONTIN [Suspect]
  6. AMBIEN [Suspect]
  7. ARANESP [Concomitant]
  8. MORPHINE SULFATE [Concomitant]
  9. CHLORPROMAZINE [Concomitant]
  10. OXYCODONE HCL [Concomitant]
  11. PROGRAF [Concomitant]
  12. PROTONIX [Concomitant]
  13. PRANDIN [Concomitant]
  14. ZOLOFT [Concomitant]
  15. GLIPIZIDE [Concomitant]
  16. PROCARDIA [Concomitant]
  17. MAGNESIUM (MAGNESIUM) [Concomitant]
  18. LEVAQUIN [Concomitant]
  19. PENTAMIDINE (PENTAMIDINE) [Concomitant]
  20. PERICOLACE (PERI-COLACE) [Concomitant]
  21. DULCOLAX [Concomitant]
  22. ASPIRIN [Concomitant]
  23. LASIX [Concomitant]
  24. LEUKINE [Concomitant]
  25. DEXAMETHASONE [Concomitant]
  26. ADRIAMYCIN PFS [Concomitant]
  27. CISPLATIN [Concomitant]
  28. SENEKOT (SENNA FRUIT) [Concomitant]
  29. INDERAL [Concomitant]
  30. MULTIVITAMIN [Concomitant]
  31. INSULIN [Concomitant]
  32. ALDACTONE [Concomitant]
  33. MEGACE [Concomitant]

REACTIONS (4)
  - CONTUSION [None]
  - FACE INJURY [None]
  - FALL [None]
  - MENTAL STATUS CHANGES [None]
